FAERS Safety Report 8859461 (Version 1)
Quarter: 2012Q4

REPORT INFORMATION
  Report Type: Spontaneous
  Country: DK (occurrence: None)
  Receive Date: 20121023
  Receipt Date: 20121023
  Transmission Date: 20130627
  Serious: Yes (Congenital Anomaly)
  Sender: FDA-Public Use
  Company Number: 2012MA012408

PATIENT

DRUGS (3)
  1. LEVETIRACETAM [Suspect]
     Indication: EPILEPSY
     Route: 064
  2. GABAPENTIN [Suspect]
     Indication: EPILEPSY
     Route: 064
  3. CARBAMAZEPINE [Suspect]
     Indication: EPILEPSY
     Route: 064

REACTIONS (2)
  - Talipes [None]
  - Maternal drugs affecting foetus [None]
